FAERS Safety Report 16870322 (Version 1)
Quarter: 2019Q3

REPORT INFORMATION
  Report Type: Spontaneous
  Country: CA (occurrence: CA)
  Receive Date: 20190930
  Receipt Date: 20190930
  Transmission Date: 20191005
  Serious: Yes (Hospitalization)
  Sender: FDA-Public Use
  Company Number: CA-TEVA-2019-CA-1114222

PATIENT
  Age: 87 Year
  Sex: Female
  Weight: 75 kg

DRUGS (19)
  1. IBUPROFEN. [Suspect]
     Active Substance: IBUPROFEN
     Indication: TOOTH EXTRACTION
     Route: 048
  2. ACETAMINOPHEN. [Concomitant]
     Active Substance: ACETAMINOPHEN
  3. ALENDRONATE SODIUM. [Concomitant]
     Active Substance: ALENDRONATE SODIUM
  4. BETAMETHASONE DIPROPIONATE/CALCIPOTRIOL [Concomitant]
  5. CALCIUM CARBONATE/VITAMIN D3 [Concomitant]
     Active Substance: CALCIUM CARBONATE\CHOLECALCIFEROL
  6. CODEINE [Concomitant]
     Active Substance: CODEINE
  7. COLACE [Concomitant]
     Active Substance: DOCUSATE SODIUM
  8. METFORMIN [Concomitant]
     Active Substance: METFORMIN HYDROCHLORIDE
  9. PREGABALIN. [Concomitant]
     Active Substance: PREGABALIN
  10. ASA EC [Concomitant]
     Active Substance: ASPIRIN
  11. LORAZEPAM. [Concomitant]
     Active Substance: LORAZEPAM
  12. SENNOSIDES. [Concomitant]
     Active Substance: SENNOSIDES
  13. LOSARTAN AND HYDROCHLOROTHIAZIDE [Concomitant]
     Active Substance: HYDROCHLOROTHIAZIDE\LOSARTAN POTASSIUM
  14. ATENOLOL. [Concomitant]
     Active Substance: ATENOLOL
  15. CLOXACILLIN [Suspect]
     Active Substance: CLOXACILLIN
     Indication: TOOTH EXTRACTION
     Route: 048
  16. ANASTROZOLE. [Concomitant]
     Active Substance: ANASTROZOLE
  17. ATORVASTATIN CALCIUM. [Concomitant]
     Active Substance: ATORVASTATIN CALCIUM
  18. NITROGLYCERIN. [Concomitant]
     Active Substance: NITROGLYCERIN
  19. ZOPICLONE [Concomitant]
     Active Substance: ZOPICLONE

REACTIONS (7)
  - Blood alkaline phosphatase increased [Recovered/Resolved]
  - Blood bilirubin increased [Recovered/Resolved]
  - Cholestasis [Recovered/Resolved]
  - Jaundice [Recovered/Resolved]
  - Aspartate aminotransferase increased [Recovered/Resolved]
  - Gamma-glutamyltransferase increased [Recovered/Resolved]
  - Hepatitis cholestatic [Recovered/Resolved]
